FAERS Safety Report 5122141-6 (Version None)
Quarter: 2006Q4

REPORT INFORMATION
  Report Type: 
  Country: None (occurrence: None)
  Receive Date: 20061004
  Receipt Date: 20061004
  Transmission Date: 20070319
  Serious: Yes (Hospitalization)
  Sender: FDA-Public Use
  Company Number: None

PATIENT
  Age: 39 Year
  Sex: Male

DRUGS (2)
  1. BUPROPRION   200 MG [Suspect]
     Indication: DEPRESSION
     Dosage: 200 MG PO BID
     Route: 048
  2. MIRTAZAPINE [Suspect]
     Indication: DEPRESSION
     Dosage: 15 MG PO QHS
     Route: 048

REACTIONS (1)
  - CONVULSION [None]
